FAERS Safety Report 16582868 (Version 1)
Quarter: 2019Q3

REPORT INFORMATION
  Report Type: Report from Study
  Country: TR (occurrence: TR)
  Receive Date: 20190717
  Receipt Date: 20190717
  Transmission Date: 20191004
  Serious: Yes (Other)
  Sender: FDA-Public Use
  Company Number: TR-JNJFOC-20170221179

PATIENT
  Age: 14 Year
  Sex: Female
  Weight: 48 kg

DRUGS (20)
  1. NAHCO3 [Concomitant]
     Active Substance: SODIUM BICARBONATE
     Indication: PROPHYLAXIS
     Route: 048
     Dates: start: 20170220
  2. RANITIDINE. [Concomitant]
     Active Substance: RANITIDINE
     Indication: PROPHYLAXIS
     Route: 042
     Dates: start: 20170211
  3. RITUXIMAB. [Suspect]
     Active Substance: RITUXIMAB
     Indication: LYMPHOMA
     Route: 042
     Dates: start: 20170211
  4. CARBOPLATIN. [Suspect]
     Active Substance: CARBOPLATIN
     Indication: LYMPHOMA
     Route: 042
     Dates: start: 20170213
  5. DEXAMETHASONE. [Suspect]
     Active Substance: DEXAMETHASONE
     Indication: LYMPHOMA
     Route: 042
     Dates: start: 20170215
  6. IBRUTINIB [Suspect]
     Active Substance: IBRUTINIB
     Indication: LYMPHOMA
     Route: 048
     Dates: start: 20170211, end: 20170219
  7. METHOTREXATE. [Suspect]
     Active Substance: METHOTREXATE
     Indication: LYMPHOMA
     Route: 042
     Dates: start: 20170210
  8. GLUTAMINE [Concomitant]
     Active Substance: GLUTAMINE
     Indication: PROPHYLAXIS
     Route: 048
     Dates: start: 20170222
  9. TAZOCIN [Concomitant]
     Active Substance: PIPERACILLIN SODIUM\TAZOBACTAM SODIUM
     Indication: PROPHYLAXIS
     Route: 042
     Dates: start: 20170221
  10. CONTRAMAL [Concomitant]
     Active Substance: TRAMADOL HYDROCHLORIDE
     Indication: MUCOSAL INFLAMMATION
     Route: 048
     Dates: start: 20170228
  11. LASIX [Concomitant]
     Active Substance: FUROSEMIDE
     Indication: PROPHYLAXIS
     Route: 042
     Dates: start: 20170209
  12. TANFLEX [Concomitant]
     Indication: PROPHYLAXIS
     Route: 048
     Dates: start: 20170222
  13. OCTAGAM IMMUNE GLOBULIN (HUMAN) [Concomitant]
     Active Substance: HUMAN IMMUNOGLOBULIN G
     Indication: HYPOGAMMAGLOBULINAEMIA
     Route: 042
     Dates: start: 20170223, end: 20170223
  14. IBRUTINIB [Suspect]
     Active Substance: IBRUTINIB
     Route: 048
     Dates: start: 20170308, end: 20170310
  15. IFOSFAMIDE. [Suspect]
     Active Substance: IFOSFAMIDE
     Indication: LYMPHOMA
     Route: 042
     Dates: start: 20170213
  16. ETOPOSIDE. [Suspect]
     Active Substance: ETOPOSIDE
     Indication: LYMPHOMA
     Route: 042
     Dates: start: 20170213, end: 20170215
  17. NEUPOGEN [Concomitant]
     Active Substance: FILGRASTIM
     Indication: NEUTROPENIA
     Dosage: 300 MU
     Route: 058
     Dates: start: 20170223, end: 20170302
  18. AMIKOZIT [Concomitant]
     Active Substance: AMIKACIN SULFATE
     Indication: PROPHYLAXIS
     Route: 042
     Dates: start: 20170223
  19. CYTARABINE. [Suspect]
     Active Substance: CYTARABINE
     Indication: LYMPHOMA
     Route: 037
     Dates: start: 20170210
  20. DIPOTASSIUM PHOSPHATE [Concomitant]
     Active Substance: POTASSIUM PHOSPHATE, DIBASIC
     Indication: HYPOPHOSPHATAEMIA
     Route: 042
     Dates: start: 20170216

REACTIONS (2)
  - Platelet count decreased [Recovered/Resolved]
  - Febrile neutropenia [Recovered/Resolved]

NARRATIVE: CASE EVENT DATE: 20170222
